FAERS Safety Report 25553950 (Version 1)
Quarter: 2025Q3

REPORT INFORMATION
  Report Type: Spontaneous
  Country: US (occurrence: US)
  Receive Date: 20250715
  Receipt Date: 20250715
  Transmission Date: 20251021
  Serious: Yes (Death, Other)
  Sender: BAXTER
  Company Number: US-BAXTER-2025BAX018127

PATIENT
  Sex: Female

DRUGS (2)
  1. NEXTERONE [Suspect]
     Active Substance: AMIODARONE HYDROCHLORIDE
     Indication: Dyspnoea
     Route: 042
     Dates: start: 20240316
  2. NEXTERONE [Suspect]
     Active Substance: AMIODARONE HYDROCHLORIDE
     Indication: Chest discomfort

REACTIONS (7)
  - Acute respiratory distress syndrome [Fatal]
  - Multiple organ dysfunction syndrome [Unknown]
  - Embolism [Unknown]
  - Cerebrovascular accident [Unknown]
  - Pulmonary toxicity [Unknown]
  - Disseminated intravascular coagulation [Unknown]
  - Thrombosis [Unknown]
